FAERS Safety Report 5246601-2 (Version None)
Quarter: 2007Q1

REPORT INFORMATION
  Report Type: 
  Country: None (occurrence: None)
  Receive Date: 20070226
  Receipt Date: 20070214
  Transmission Date: 20070707
  Serious: Yes (Hospitalization, Other)
  Sender: FDA-Public Use
  Company Number: US-ABBOTT-07P-163-0359489-00

PATIENT
  Age: 5 Year
  Sex: Female
  Weight: 16.8 kg

DRUGS (14)
  1. SEVOFLURANE [Suspect]
     Indication: ANAESTHESIA
     Route: 055
  2. SEVOFLURANE [Suspect]
     Route: 055
  3. CLONIDINE [Interacting]
     Indication: AGITATION
     Route: 048
  4. CLONIDINE [Interacting]
     Route: 048
  5. NITROUS OXIDE W/ OXYGEN [Interacting]
     Indication: DRUG USE FOR UNKNOWN INDICATION
     Dosage: NOT REPORTED
  6. NITROUS OXIDE W/ OXYGEN [Interacting]
     Dosage: NOT REPORTED
  7. RANITIDINE [Concomitant]
     Indication: DRUG USE FOR UNKNOWN INDICATION
     Dosage: NOT REPORTED
  8. LACTULOSE [Concomitant]
     Indication: DRUG USE FOR UNKNOWN INDICATION
     Dosage: NOT REPORTED
  9. BACLOFEN [Concomitant]
     Indication: DRUG USE FOR UNKNOWN INDICATION
  10. OXYGEN [Concomitant]
     Indication: DRUG USE FOR UNKNOWN INDICATION
     Dosage: NOT REPORTED
  11. OXYGEN [Concomitant]
     Route: 055
  12. OXYGEN [Concomitant]
     Dosage: NOT REPORTED
  13. FENTANYL [Concomitant]
     Indication: PROPHYLAXIS
  14. VECURONIUM BROMIDE [Concomitant]
     Indication: PROPHYLAXIS

REACTIONS (3)
  - CARDIAC ARREST [None]
  - DRUG INTERACTION [None]
  - MEDICATION ERROR [None]
